FAERS Safety Report 14732198 (Version 1)
Quarter: 2018Q2

REPORT INFORMATION
  Report Type: Spontaneous
  Country: FR (occurrence: FR)
  Receive Date: 20180409
  Receipt Date: 20180409
  Transmission Date: 20180711
  Serious: Yes (Other)
  Sender: FDA-Public Use
  Company Number: FR-ROCHE-2101309

PATIENT
  Age: 17 Year
  Sex: Female

DRUGS (1)
  1. XOLAIR [Suspect]
     Active Substance: OMALIZUMAB
     Indication: CHRONIC SPONTANEOUS URTICARIA
     Dosage: UNK
     Route: 065

REACTIONS (5)
  - Vomiting [Unknown]
  - Tachycardia [Unknown]
  - Laryngeal oedema [Unknown]
  - Urticaria [Unknown]
  - Injection site reaction [Unknown]
